FAERS Safety Report 9234865 (Version 1)
Quarter: 2013Q2

REPORT INFORMATION
  Report Type: Spontaneous
  Country: US (occurrence: US)
  Receive Date: 20130416
  Receipt Date: 20130416
  Transmission Date: 20140414
  Serious: Yes (Hospitalization)
  Sender: FDA-Public Use
  Company Number: US-PFIZER INC-2013119611

PATIENT
  Sex: Male

DRUGS (1)
  1. LYRICA [Suspect]
     Dosage: UNK
     Dates: start: 201303, end: 2013

REACTIONS (6)
  - Loss of consciousness [Unknown]
  - Syncope [Unknown]
  - Influenza like illness [Unknown]
  - Nausea [Unknown]
  - Aphagia [Unknown]
  - Malaise [Unknown]
